FAERS Safety Report 5699996-X (Version None)
Quarter: 2008Q2

REPORT INFORMATION
  Report Type: 
  Country: None (occurrence: None)
  Receive Date: 20080410
  Receipt Date: 20080403
  Transmission Date: 20081010
  Serious: Yes (Congenital Anomaly)
  Sender: FDA-Public Use
  Company Number: FR-SP-E2008-03152

PATIENT
  Sex: Male

DRUGS (3)
  1. TUBERTEST [Suspect]
     Indication: TUBERCULIN TEST
     Route: 064
  2. LUTENYL (NOMEGESTROL) [Suspect]
  3. EFFEXOR [Suspect]

REACTIONS (3)
  - AORTA HYPOPLASIA [None]
  - CARDIAC DISORDER [None]
  - PERSISTENT LEFT SUPERIOR VENA CAVA [None]
